FAERS Safety Report 17740159 (Version 7)
Quarter: 2021Q3

REPORT INFORMATION
  Report Type: Spontaneous
  Country: US (occurrence: US)
  Receive Date: 20200504
  Receipt Date: 20210726
  Transmission Date: 20211014
  Serious: No
  Sender: FDA-Public Use
  Company Number: US-PFIZER INC-2020133636

PATIENT
  Age: 56 Year
  Sex: Male

DRUGS (3)
  1. XELJANZ XR [Suspect]
     Active Substance: TOFACITINIB CITRATE
     Indication: RHEUMATOID ARTHRITIS
     Dosage: 11 MG, 1X/DAY
     Route: 048
     Dates: start: 2018
  2. XELJANZ XR [Suspect]
     Active Substance: TOFACITINIB CITRATE
     Dosage: 11 MG, ONCE A DAY
     Route: 048
     Dates: start: 20200313, end: 20200616
  3. XELJANZ XR [Suspect]
     Active Substance: TOFACITINIB CITRATE
     Dosage: 11 MG, ONCE A DAY
     Route: 048
     Dates: start: 20200720

REACTIONS (10)
  - Myalgia [Recovering/Resolving]
  - Hepatic enzyme increased [Unknown]
  - Feeling abnormal [Unknown]
  - Illness [Unknown]
  - Blood creatinine increased [Unknown]
  - Product dose omission in error [Unknown]
  - Intentional dose omission [Unknown]
  - Intentional product misuse [Unknown]
  - Blood glucose abnormal [Unknown]
  - Protein total increased [Unknown]

NARRATIVE: CASE EVENT DATE: 2020
